FAERS Safety Report 7869345-7 (Version None)
Quarter: 2011Q4

REPORT INFORMATION
  Report Type: 
  Country: None (occurrence: None)
  Receive Date: 20111028
  Receipt Date: 20110103
  Transmission Date: 20120403
  Serious: No
  Sender: FDA-Public Use
  Company Number: US-AMGEN-USASP2011000127

PATIENT
  Age: 49 Year
  Sex: Male
  Weight: 102.4 kg

DRUGS (1)
  1. ENBREL [Suspect]
     Indication: RHEUMATOID ARTHRITIS
     Dosage: 25 MG, Q2WK
     Route: 058
     Dates: start: 20010103

REACTIONS (4)
  - INFECTION [None]
  - INJECTION SITE SWELLING [None]
  - INJECTION SITE PRURITUS [None]
  - INJECTION SITE ERYTHEMA [None]
